FAERS Safety Report 8496439-8 (Version None)
Quarter: 2012Q3

REPORT INFORMATION
  Report Type: 
  Country: None (occurrence: None)
  Receive Date: 20120709
  Receipt Date: 20120702
  Transmission Date: 20120928
  Serious: Yes (Death, Hospitalization)
  Sender: FDA-Public Use
  Company Number: US-BRISTOL-MYERS SQUIBB COMPANY-16037574

PATIENT
  Age: 78 Year
  Sex: Female

DRUGS (5)
  1. PLACEBO [Suspect]
     Indication: TYPE 2 DIABETES MELLITUS
     Dates: start: 20110218, end: 20111016
  2. ASPIRIN [Concomitant]
  3. BLINDED: SAXAGLIPTIN [Suspect]
     Indication: TYPE 2 DIABETES MELLITUS
     Dates: start: 20110218, end: 20111016
  4. LEVEMIR [Suspect]
     Indication: TYPE 2 DIABETES MELLITUS
  5. METOPROLOL TARTRATE [Suspect]

REACTIONS (4)
  - DEHYDRATION [None]
  - CELLULITIS [None]
  - AZOTAEMIA [None]
  - ARRHYTHMIA [None]
